FAERS Safety Report 7966251-4 (Version None)
Quarter: 2011Q4

REPORT INFORMATION
  Report Type: 
  Country: None (occurrence: None)
  Receive Date: 20111208
  Receipt Date: 20111205
  Transmission Date: 20120403
  Serious: Yes (Life-Threatening, Other)
  Sender: FDA-Public Use
  Company Number: PHEH2011US009854

PATIENT
  Sex: Female

DRUGS (24)
  1. RECLAST [Suspect]
     Indication: OSTEOPOROSIS
     Dosage: 5 MG/100 ML, YEARLY
     Route: 042
     Dates: start: 20111108
  2. VITAMIN D [Concomitant]
  3. OMEPRAZOLE [Concomitant]
  4. HYDROCODONE [Concomitant]
  5. FLAXSEED OIL [Concomitant]
  6. VITAMIN B COMPLEX CAP [Concomitant]
  7. METAXALONE [Concomitant]
     Dosage: 800 MG, TWICE TO THRICE PER DAY
  8. VITAMIN E [Concomitant]
  9. ASCORBIC ACID [Concomitant]
  10. FLONASE [Concomitant]
  11. ASPIRIN [Concomitant]
     Dosage: 81 MG, UNK
  12. PERCOCET [Suspect]
     Indication: PAIN
  13. MELOXICAM [Concomitant]
     Dosage: 15 MG, BID
  14. NORCO [Concomitant]
  15. IBUPROFEN (ADVIL) [Concomitant]
     Dosage: 200 MG, PRN
  16. POTASSIUM ACETATE [Concomitant]
  17. LIDODERM [Concomitant]
  18. MULTI-VITAMINS [Concomitant]
  19. GABAPENTIN [Concomitant]
     Dosage: 100 MG, TID
  20. LORAZEPAM [Concomitant]
     Indication: ANXIETY
     Dosage: 0.5 MG, PRN
  21. MAGNESIUM SULFATE [Concomitant]
  22. CALCIUM [Concomitant]
  23. FISH OIL [Concomitant]
  24. PROMETHAZINE [Concomitant]

REACTIONS (15)
  - BACK PAIN [None]
  - FLANK PAIN [None]
  - FEELING ABNORMAL [None]
  - MUSCLE SPASMS [None]
  - FUNGAL INFECTION [None]
  - FEAR [None]
  - PAIN IN EXTREMITY [None]
  - LIMB DISCOMFORT [None]
  - GENERAL PHYSICAL HEALTH DETERIORATION [None]
  - GAIT DISTURBANCE [None]
  - MUSCULOSKELETAL DISCOMFORT [None]
  - PARAESTHESIA [None]
  - ELECTRIC SHOCK [None]
  - URINARY TRACT INFECTION [None]
  - PAIN [None]
